FAERS Safety Report 10159493 (Version 2)
Quarter: 2015Q2

REPORT INFORMATION
  Report Type: Spontaneous
  Country: JP (occurrence: JP)
  Receive Date: 20140508
  Receipt Date: 20150521
  Transmission Date: 20150821
  Serious: Yes (Death, Hospitalization, Other)
  Sender: FDA-Public Use
  Company Number: JP-JNJFOC-20140501758

PATIENT
  Age: 83 Year
  Sex: Male
  Weight: 53 kg

DRUGS (12)
  1. MIRCERA [Concomitant]
     Active Substance: METHOXY POLYETHYLENE GLYCOL-EPOETIN BETA
     Indication: NEPHROGENIC ANAEMIA
     Route: 058
     Dates: start: 20120914, end: 20130111
  2. PREDNISOLONE. [Concomitant]
     Active Substance: PREDNISOLONE
     Indication: RHEUMATOID ARTHRITIS
     Route: 048
     Dates: start: 20130711
  3. BREDININ [Concomitant]
     Active Substance: MIZORIBINE
     Indication: RHEUMATOID ARTHRITIS
     Dosage: AFTER BREAKFAST AND SUPPER
     Route: 048
     Dates: start: 20111124, end: 20130201
  4. FEBURIC [Concomitant]
     Active Substance: FEBUXOSTAT
     Indication: HYPERURICAEMIA
     Dosage: AFTER BREAKFAST
     Route: 048
     Dates: start: 20120601, end: 20130201
  5. ORCL [Concomitant]
     Indication: RHEUMATOID ARTHRITIS
     Dosage: AFTER EACH MEAL
     Route: 048
     Dates: start: 20120420, end: 20130201
  6. SIMPONI [Suspect]
     Active Substance: GOLIMUMAB
     Indication: RHEUMATOID ARTHRITIS
     Route: 058
     Dates: start: 20120713, end: 20130111
  7. TAKEPRON [Concomitant]
     Active Substance: LANSOPRAZOLE
     Indication: HAEMORRHAGIC EROSIVE GASTRITIS
     Dosage: AFTER BREAKFAST
     Route: 048
     Dates: start: 20120405, end: 20130201
  8. TAKEPRON [Concomitant]
     Active Substance: LANSOPRAZOLE
     Indication: PROPHYLAXIS AGAINST GASTROINTESTINAL ULCER
     Dosage: AFTER BREAKFAST
     Route: 048
     Dates: start: 20120405, end: 20130201
  9. PREDNISOLONE. [Concomitant]
     Active Substance: PREDNISOLONE
     Indication: RHEUMATOID ARTHRITIS
     Route: 048
     Dates: start: 20120216, end: 20130710
  10. PREDNISOLONE. [Concomitant]
     Active Substance: PREDNISOLONE
     Indication: RHEUMATOID ARTHRITIS
     Route: 048
  11. GLAKAY [Concomitant]
     Active Substance: MENATETRENONE
     Indication: OSTEOPOROSIS
     Dosage: AFTER EACH MEAL
     Route: 048
     Dates: start: 20111222, end: 20130201
  12. FERROMIA [Concomitant]
     Active Substance: FERROUS CITRATE
     Indication: IRON DEFICIENCY ANAEMIA
     Dosage: BEFORE BED TIME
     Route: 048
     Dates: start: 20120914, end: 20130201

REACTIONS (8)
  - Cardiac failure [Fatal]
  - Feeding disorder [Unknown]
  - Pulmonary alveolar haemorrhage [Recovered/Resolved]
  - Interstitial lung disease [Recovered/Resolved]
  - Pneumonia bacterial [Unknown]
  - Marasmus [Fatal]
  - Fall [Recovered/Resolved]
  - Muscular weakness [Unknown]

NARRATIVE: CASE EVENT DATE: 20130130
